FAERS Safety Report 17552958 (Version 8)
Quarter: 2023Q1

REPORT INFORMATION
  Report Type: Spontaneous
  Country: CA (occurrence: CA)
  Receive Date: 20200317
  Receipt Date: 20230131
  Transmission Date: 20230418
  Serious: Yes (Hospitalization, Other)
  Sender: FDA-Public Use
  Company Number: CA-PFIZER INC-2019345370

PATIENT
  Age: 58 Year
  Sex: Female
  Weight: 104 kg

DRUGS (12)
  1. XELJANZ [Suspect]
     Active Substance: TOFACITINIB CITRATE
     Indication: Colitis ulcerative
     Dosage: 10 MG, 2X/DAY
     Route: 048
     Dates: start: 20190305, end: 201905
  2. XELJANZ [Suspect]
     Active Substance: TOFACITINIB CITRATE
     Dosage: 5 MG, 2X/DAY
     Route: 048
     Dates: start: 20190505
  3. XELJANZ [Suspect]
     Active Substance: TOFACITINIB CITRATE
     Dosage: 5 MG, 1X/DAY
     Route: 048
     Dates: start: 2019, end: 2020
  4. XELJANZ [Suspect]
     Active Substance: TOFACITINIB CITRATE
     Dosage: 5 MG, 2X/DAY
     Dates: start: 2020, end: 2021
  5. XELJANZ [Suspect]
     Active Substance: TOFACITINIB CITRATE
     Dosage: UNK
     Route: 048
     Dates: start: 20210305
  6. XELJANZ [Suspect]
     Active Substance: TOFACITINIB CITRATE
     Dosage: 5 MG, 2X/DAY
     Route: 048
     Dates: start: 2022
  7. MESALAMINE [Concomitant]
     Active Substance: MESALAMINE
     Dosage: UNK
     Route: 065
  8. PREDNISONE [Concomitant]
     Active Substance: PREDNISONE
     Dosage: UNKNOWN DOSE, 7 X WEEKLY
     Route: 065
     Dates: start: 201902
  9. PREDNISONE [Concomitant]
     Active Substance: PREDNISONE
     Dosage: 5 ML, 1X/DAY
  10. PREDNISONE [Concomitant]
     Active Substance: PREDNISONE
     Dosage: 10 ML, FOR 2 WEEKS
  11. PREDNISONE [Concomitant]
     Active Substance: PREDNISONE
     Dosage: 7.5 ML, FOR 2 WEEKS
  12. PREDNISONE [Concomitant]
     Active Substance: PREDNISONE
     Dosage: 5 ML, FOR 8 WEEKS

REACTIONS (12)
  - Hip arthroplasty [Not Recovered/Not Resolved]
  - Haematochezia [Not Recovered/Not Resolved]
  - Immunosuppression [Unknown]
  - Therapeutic product effect incomplete [Unknown]
  - Muscle spasms [Unknown]
  - Pseudopolyposis [Unknown]
  - Condition aggravated [Unknown]
  - Arthralgia [Not Recovered/Not Resolved]
  - High density lipoprotein increased [Unknown]
  - Blood cholesterol increased [Unknown]
  - Low density lipoprotein increased [Unknown]
  - Intentional product misuse [Unknown]

NARRATIVE: CASE EVENT DATE: 20200301
